FAERS Safety Report 15117352 (Version 1)
Quarter: 2018Q3

REPORT INFORMATION
  Report Type: Spontaneous
  Country: US (occurrence: US)
  Receive Date: 20180612
  Receipt Date: 20180612
  Transmission Date: 20181010
  Serious: No
  Sender: FDA-Public Use
  Company Number: None

PATIENT
  Age: 48 Year
  Sex: Female

DRUGS (9)
  1. OMEPRAZOLE. [Concomitant]
     Active Substance: OMEPRAZOLE
  2. CELECOXIB. [Concomitant]
     Active Substance: CELECOXIB
  3. NEURONTIN [Concomitant]
     Active Substance: GABAPENTIN
  4. ENBREL [Concomitant]
     Active Substance: ETANERCEPT
  5. HUMIRA [Suspect]
     Active Substance: ADALIMUMAB
     Indication: RHEUMATOID ARTHRITIS
     Route: 058
     Dates: start: 20180508
  6. MTX [Concomitant]
     Active Substance: METHOTREXATE SODIUM
  7. VENLAFAXINE [Concomitant]
     Active Substance: VENLAFAXINE HYDROCHLORIDE
  8. FA [Concomitant]
  9. SULFAZINE [Concomitant]
     Active Substance: SULFASALAZINE

REACTIONS (1)
  - Cardiac failure [None]

NARRATIVE: CASE EVENT DATE: 20180521
